FAERS Safety Report 20845942 (Version 1)
Quarter: 2022Q2

REPORT INFORMATION
  Report Type: Spontaneous
  Country: US (occurrence: US)
  Receive Date: 20220518
  Receipt Date: 20220518
  Transmission Date: 20220720
  Serious: No
  Sender: FDA-Public Use
  Company Number: USA--2022-US-000082

PATIENT
  Age: 86 Year
  Sex: Female

DRUGS (5)
  1. LATANOPROST [Suspect]
     Active Substance: LATANOPROST
     Dates: start: 20220203, end: 20220203
  2. Alphagan P 0.2% ophthalmic solution [Concomitant]
  3. COSOPT [Concomitant]
     Active Substance: DORZOLAMIDE HYDROCHLORIDE\TIMOLOL MALEATE
  4. Norvasc 5 mg tablet [Concomitant]
     Route: 048
     Dates: start: 2020
  5. Synthroid  75 mcg tablet [Concomitant]
     Route: 048
     Dates: start: 2014

REACTIONS (2)
  - Headache [Recovered/Resolved]
  - Dry mouth [Recovered/Resolved]

NARRATIVE: CASE EVENT DATE: 20220203
